FAERS Safety Report 9269994 (Version 1)
Quarter: 2013Q2

REPORT INFORMATION
  Report Type: Spontaneous
  Country: US (occurrence: US)
  Receive Date: 20130503
  Receipt Date: 20130503
  Transmission Date: 20140414
  Serious: Yes (Hospitalization)
  Sender: FDA-Public Use
  Company Number: US-ROXANE LABORATORIES, INC.-2013-BI-11956GD

PATIENT
  Age: 46 Year
  Sex: Male

DRUGS (4)
  1. SERTRALINE [Suspect]
     Indication: DEPRESSION
     Dosage: 100 MG
  2. NYQUIL [Suspect]
     Indication: NASOPHARYNGITIS
     Dosage: 240 ML
     Route: 048
  3. METFORMIN [Concomitant]
     Indication: DIABETES MELLITUS
     Dosage: 1000 MG
  4. LEVOTHYROXINE [Concomitant]
     Indication: HYPOTHYROIDISM
     Dosage: 100 MCG

REACTIONS (6)
  - Drug interaction [Recovered/Resolved]
  - Serotonin syndrome [Recovered/Resolved]
  - Metabolic acidosis [Recovered/Resolved]
  - Cough [Unknown]
  - Nasal congestion [Unknown]
  - Insomnia [Unknown]
